FAERS Safety Report 12245950 (Version 1)
Quarter: 2016Q2

REPORT INFORMATION
  Report Type: Spontaneous
  Country: US (occurrence: US)
  Receive Date: 20160407
  Receipt Date: 20160407
  Transmission Date: 20160815
  Serious: No
  Sender: FDA-Public Use
  Company Number: US-WATSON-2016-04903

PATIENT
  Sex: Female

DRUGS (9)
  1. ATIVAN [Concomitant]
     Active Substance: LORAZEPAM
     Indication: ANXIETY
  2. NORTRIPTYLINE HYDROCHLORIDE (WATSON LABORATORIES) [Suspect]
     Active Substance: NORTRIPTYLINE HYDROCHLORIDE
     Dosage: 25 MG, UP TO TWICE DAILY AS NEEDED
     Route: 065
  3. GABAPENTIN. [Concomitant]
     Active Substance: GABAPENTIN
     Indication: COMPLEX REGIONAL PAIN SYNDROME
     Dosage: 300 MG, QAM/QPM
     Route: 048
  4. NORTRIPTYLINE HYDROCHLORIDE (WATSON LABORATORIES) [Suspect]
     Active Substance: NORTRIPTYLINE HYDROCHLORIDE
     Indication: COMPLEX REGIONAL PAIN SYNDROME
     Dosage: 25 MG, DAILY
     Route: 065
  5. SOMA [Concomitant]
     Active Substance: CARISOPRODOL
     Indication: COMPLEX REGIONAL PAIN SYNDROME
     Dosage: UNK UNK, UNKNOWN
     Route: 065
  6. LYRICA [Suspect]
     Active Substance: PREGABALIN
     Indication: FIBROMYALGIA
  7. NEXIUM [Concomitant]
     Active Substance: ESOMEPRAZOLE MAGNESIUM
     Indication: GASTROOESOPHAGEAL REFLUX DISEASE
     Dosage: UNK UNK, UNKNOWN
     Route: 065
  8. LYRICA [Suspect]
     Active Substance: PREGABALIN
     Indication: COMPLEX REGIONAL PAIN SYNDROME
     Dosage: 4 DF, QAM/QPM
     Route: 048
  9. ATIVAN [Concomitant]
     Active Substance: LORAZEPAM
     Indication: DEPRESSION
     Dosage: UNK UNK, UNKNOWN
     Route: 065

REACTIONS (2)
  - Depression [Unknown]
  - Weight increased [Recovering/Resolving]
